FAERS Safety Report 16222655 (Version 8)
Quarter: 2021Q2

REPORT INFORMATION
  Report Type: Spontaneous
  Country: US (occurrence: US)
  Receive Date: 20190422
  Receipt Date: 20210604
  Transmission Date: 20210716
  Serious: Yes (Other)
  Sender: FDA-Public Use
  Company Number: US-PFIZER INC-2019164332

PATIENT
  Age: 83 Year
  Sex: Female
  Weight: 51.71 kg

DRUGS (1)
  1. XELJANZ [Suspect]
     Active Substance: TOFACITINIB CITRATE
     Indication: RHEUMATOID ARTHRITIS
     Dosage: 5 MG, DAILY

REACTIONS (15)
  - Hypoacusis [Unknown]
  - Condition aggravated [Unknown]
  - Fatigue [Unknown]
  - Nephropathy [Unknown]
  - Nerve compression [Not Recovered/Not Resolved]
  - Fall [Unknown]
  - Nervousness [Unknown]
  - Hip fracture [Unknown]
  - Back disorder [Recovering/Resolving]
  - Cardiac disorder [Unknown]
  - Headache [Unknown]
  - Feeling abnormal [Not Recovered/Not Resolved]
  - Body height decreased [Unknown]
  - Memory impairment [Not Recovered/Not Resolved]
  - Weight decreased [Unknown]
